FAERS Safety Report 10100398 (Version 1)
Quarter: 2014Q2

REPORT INFORMATION
  Report Type: Spontaneous
  Country: US (occurrence: US)
  Receive Date: 20140423
  Receipt Date: 20140423
  Transmission Date: 20141212
  Serious: Yes (Other)
  Sender: FDA-Public Use
  Company Number: US-SA-2014SA048400

PATIENT
  Age: 61 Year
  Sex: Male

DRUGS (2)
  1. LANTUS SOLOSTAR [Suspect]
     Indication: TYPE 2 DIABETES MELLITUS
     Dosage: DOSE 25-30U
     Route: 058
  2. SOLOSTAR [Concomitant]

REACTIONS (4)
  - Rotator cuff repair [Unknown]
  - Injection site haemorrhage [Unknown]
  - Fall [Unknown]
  - Joint injury [Unknown]
